FAERS Safety Report 5322120-X (Version None)
Quarter: 2007Q1

REPORT INFORMATION
  Report Type: 
  Country: None (occurrence: None)
  Receive Date: 20070222
  Receipt Date: 20060410
  Transmission Date: 20070707
  Serious: Yes (Hospitalization)
  Sender: FDA-Public Use
  Company Number: HQWYE777411APR06

PATIENT
  Age: 70 Year
  Sex: Male

DRUGS (2)
  1. EFFEXOR [Suspect]
     Dosage: DOSE AND FREQUENCY UNSPECIFIED; ORAL
     Route: 048
     Dates: end: 20050101
  2. NEURONTIN [Concomitant]

REACTIONS (1)
  - SUICIDE ATTEMPT [None]
